FAERS Safety Report 6259240-1 (Version None)
Quarter: 2009Q3

REPORT INFORMATION
  Report Type: 
  Country: None (occurrence: None)
  Receive Date: 20090702
  Receipt Date: 20090619
  Transmission Date: 20100115
  Serious: Yes (Other)
  Sender: FDA-Public Use
  Company Number: ADE# 09-258DPR

PATIENT
  Age: 81 Year
  Sex: Female

DRUGS (2)
  1. DIGOXIN [Suspect]
     Indication: ATRIAL FIBRILLATION
     Dosage: ONE TABLET DAILY
  2. METOPROLOL TARTRATE [Concomitant]

REACTIONS (4)
  - CARDIAC MURMUR [None]
  - EXTRASYSTOLES [None]
  - HEART RATE IRREGULAR [None]
  - PALPITATIONS [None]
